FAERS Safety Report 5862483-X (Version None)
Quarter: 2008Q3

REPORT INFORMATION
  Report Type: 
  Country: None (occurrence: None)
  Receive Date: 20080828
  Receipt Date: 20080819
  Transmission Date: 20090109
  Serious: Yes (Hospitalization)
  Sender: FDA-Public Use
  Company Number: US-BAYER-200613720BWH

PATIENT
  Age: 49 Year
  Sex: Male
  Weight: 90 kg

DRUGS (13)
  1. SORAFENIB [Suspect]
     Indication: METASTATIC MALIGNANT MELANOMA
     Dosage: TOTAL DAILY DOSE: 800 MG  UNIT DOSE: 200 MG
     Route: 048
     Dates: start: 20060918, end: 20061016
  2. SORAFENIB [Suspect]
     Dosage: TOTAL DAILY DOSE: 800 MG  UNIT DOSE: 200 MG
     Route: 048
     Dates: start: 20060522
  3. DTIC-DOME [Suspect]
     Indication: METASTATIC MALIGNANT MELANOMA
     Route: 042
     Dates: start: 20060918, end: 20060918
  4. DTIC-DOME [Suspect]
     Dosage: TOTAL DAILY DOSE: 1560 MG  UNIT DOSE: 1000 MG/M2
     Route: 042
     Dates: start: 20060522, end: 20060522
  5. ZOLOFT [Concomitant]
     Indication: DEPRESSION
     Route: 048
  6. ZOLOFT [Concomitant]
     Route: 048
     Dates: start: 20060514
  7. ATENOLOL [Concomitant]
     Indication: HYPERTENSION
     Route: 048
  8. ATENOLOL [Concomitant]
     Dosage: TOTAL DAILY DOSE: 50 MG
     Route: 048
  9. LOTENSIN [Concomitant]
     Indication: HYPERTENSION
     Route: 048
  10. LISINOPRIL [Concomitant]
     Indication: HYPERTENSION
     Route: 048
  11. BENTYL [Concomitant]
     Indication: OESOPHAGITIS
     Dates: start: 20060530
  12. PANTRAZOLE [Concomitant]
     Route: 048
     Dates: start: 20060629
  13. INTERFERON [Concomitant]

REACTIONS (10)
  - ABDOMINAL PAIN [None]
  - ARTHRALGIA [None]
  - BLOOD AMYLASE INCREASED [None]
  - C-REACTIVE PROTEIN INCREASED [None]
  - CHEST PAIN [None]
  - CHOLECYSTITIS [None]
  - CHOLELITHIASIS [None]
  - FATIGUE [None]
  - LIPASE INCREASED [None]
  - MIGRAINE WITH AURA [None]
